FAERS Safety Report 6252137-2 (Version None)
Quarter: 2009Q2

REPORT INFORMATION
  Report Type: 
  Country: None (occurrence: None)
  Receive Date: 20090630
  Receipt Date: 20041111
  Transmission Date: 20091009
  Serious: Yes (Hospitalization)
  Sender: FDA-Public Use
  Company Number: US-ROCHE-639206

PATIENT
  Sex: Male

DRUGS (31)
  1. ENFUVIRTIDE [Suspect]
     Route: 065
     Dates: start: 20030501, end: 20051028
  2. ZIAGEN [Concomitant]
     Dates: start: 20011017
  3. VIDEX [Concomitant]
     Dates: start: 20020730, end: 20030801
  4. VIDEX [Concomitant]
     Dates: start: 20030801, end: 20050412
  5. VIREAD [Concomitant]
     Dates: start: 20030801, end: 20050412
  6. EPIVIR [Concomitant]
     Dates: start: 20040416, end: 20041014
  7. SUSTIVA [Concomitant]
     Dates: start: 20041014
  8. TRUVADA [Concomitant]
     Dates: start: 20041014, end: 20051028
  9. APTIVUS [Concomitant]
     Dates: start: 20050101, end: 20050701
  10. DAPSONE [Concomitant]
     Dates: start: 19970401, end: 20030825
  11. DAPSONE [Concomitant]
     Dates: start: 20030825, end: 20050101
  12. DIFLUCAN [Concomitant]
     Dates: start: 20030114, end: 20050714
  13. DIFLUCAN [Concomitant]
     Dates: start: 20050714
  14. MYCELEX [Concomitant]
     Dosage: FREQ:5X A DAY
     Dates: start: 20040714
  15. MYCELEX [Concomitant]
     Dates: start: 20051014, end: 20051001
  16. LEVAQUIN [Concomitant]
     Dates: start: 20040910, end: 20040920
  17. VALCYTE [Concomitant]
     Dates: start: 20041130
  18. VALCYTE [Concomitant]
     Dates: end: 20051001
  19. GANCICLOVIR [Concomitant]
     Dates: start: 20041101, end: 20041130
  20. AVELOX [Concomitant]
     Dates: start: 20041229, end: 20050301
  21. AVELOX [Concomitant]
     Dates: start: 20050301, end: 20050924
  22. AVELOX [Concomitant]
     Dates: start: 20050926, end: 20050930
  23. AVELOX [Concomitant]
     Dates: start: 20051007, end: 20051018
  24. AMPICILLIN [Concomitant]
     Dates: start: 20050511, end: 20050101
  25. MEPRON [Concomitant]
     Dates: start: 20050926, end: 20050930
  26. MEPRON [Concomitant]
     Dates: start: 20051001, end: 20051018
  27. CLINDAMYCIN [Concomitant]
     Route: 042
     Dates: start: 20050930, end: 20051001
  28. CLINDAMYCIN [Concomitant]
     Route: 042
     Dates: start: 20051024, end: 20051028
  29. LEVAQUIN [Concomitant]
     Route: 042
     Dates: start: 20050930, end: 20051001
  30. PRIMAQUINE [Concomitant]
     Dates: start: 20050930, end: 20051001
  31. PRIMAQUINE [Concomitant]
     Dates: start: 20051024, end: 20051028

REACTIONS (2)
  - DEHYDRATION [None]
  - DIARRHOEA [None]
